FAERS Safety Report 5493278-7 (Version None)
Quarter: 2007Q4

REPORT INFORMATION
  Report Type: 
  Country: None (occurrence: None)
  Receive Date: 20071022
  Receipt Date: 20071022
  Transmission Date: 20080405
  Serious: Yes (Other)
  Sender: FDA-Public Use
  Company Number: None

PATIENT
  Age: 59 Year
  Sex: Male

DRUGS (9)
  1. GATIFLOXACIN [Suspect]
     Dates: start: 20060816, end: 20060820
  2. AMOXICILLIN + CLAVULANATE POTASSIUM [Suspect]
     Dates: start: 20060821, end: 20060822
  3. DARVOCET [Concomitant]
  4. DOXYCYCLINE [Concomitant]
  5. CIPROFLOXACIN [Concomitant]
  6. MEFLOQUINE [Concomitant]
  7. LEVAQUIN [Concomitant]
  8. RESTASIS [Concomitant]
  9. ACIPHEX [Concomitant]

REACTIONS (10)
  - ABDOMINAL PAIN LOWER [None]
  - APLASTIC ANAEMIA [None]
  - CHILLS [None]
  - HEADACHE [None]
  - HEPATITIS [None]
  - LIVER INJURY [None]
  - LOSS OF CONSCIOUSNESS [None]
  - NAUSEA [None]
  - PYREXIA [None]
  - VIRAL INFECTION [None]
